FAERS Safety Report 9956395 (Version 2)
Quarter: 2014Q1

REPORT INFORMATION
  Report Type: Report from Study
  Country: US (occurrence: US)
  Receive Date: 20140304
  Receipt Date: 20140304
  Transmission Date: 20141002
  Serious: No
  Sender: FDA-Public Use
  Company Number: US-ABBVIE-11P-163-0840534-00

PATIENT
  Age: 37 Year
  Sex: Female
  Weight: 59.02 kg

DRUGS (7)
  1. HUMIRA [Suspect]
     Indication: PSORIATIC ARTHROPATHY
     Route: 058
     Dates: start: 20110418, end: 201110
  2. TRAMADOL HCL [Concomitant]
     Indication: PSORIATIC ARTHROPATHY
  3. TRAMADOL HCL [Concomitant]
     Indication: HEADACHE
  4. LODINE [Concomitant]
     Indication: PSORIATIC ARTHROPATHY
     Dosage: AS REQUIRED
  5. LODINE [Concomitant]
     Indication: HEADACHE
  6. LODINE [Concomitant]
     Indication: BREAKTHROUGH PAIN
  7. CYMBALTA [Concomitant]
     Indication: ANXIETY

REACTIONS (14)
  - Nausea [Recovering/Resolving]
  - Diarrhoea [Recovered/Resolved]
  - Fatigue [Recovering/Resolving]
  - Headache [Not Recovered/Not Resolved]
  - Migraine [Unknown]
  - Nausea [Unknown]
  - Menstruation irregular [Unknown]
  - Labyrinthitis [Unknown]
  - Vertigo [Recovered/Resolved]
  - Vomiting [Unknown]
  - Heart rate increased [Unknown]
  - Hypoaesthesia [Unknown]
  - Paraesthesia [Unknown]
  - Panic attack [Unknown]
